FAERS Safety Report 16238858 (Version 1)
Quarter: 2019Q2

REPORT INFORMATION
  Report Type: Report from Study
  Country: GB (occurrence: GB)
  Receive Date: 20190425
  Receipt Date: 20190425
  Transmission Date: 20190711
  Serious: Yes (Death)
  Sender: FDA-Public Use
  Company Number: GB-PFIZER INC-2019172884

PATIENT

DRUGS (2)
  1. GENTAMICIN SULFATE. [Suspect]
     Active Substance: GENTAMICIN SULFATE
     Indication: BACTERAEMIA
     Dosage: UNK
  2. GENTAMICIN SULFATE. [Suspect]
     Active Substance: GENTAMICIN SULFATE
     Indication: ESCHERICHIA BACTERAEMIA

REACTIONS (1)
  - Drug resistance [Fatal]
